FAERS Safety Report 6656832-2 (Version None)
Quarter: 2010Q1

REPORT INFORMATION
  Report Type: 
  Country: None (occurrence: None)
  Receive Date: 20100325
  Receipt Date: 20100318
  Transmission Date: 20100710
  Serious: Yes (Death)
  Sender: FDA-Public Use
  Company Number: 1000012494

PATIENT
  Age: 58 Year
  Sex: Male

DRUGS (1)
  1. DILTIAZEM [Suspect]
     Dosage: (7.2 GM, ONCE)

REACTIONS (9)
  - ABDOMINAL DISTENSION [None]
  - BRADYCARDIA [None]
  - CARDIAC ARREST [None]
  - COMPLETED SUICIDE [None]
  - DEVICE CAPTURING ISSUE [None]
  - HYPOPERFUSION [None]
  - HYPOTENSION [None]
  - OVERDOSE [None]
  - PULMONARY OEDEMA [None]
